FAERS Safety Report 12343036 (Version 1)
Quarter: 2016Q2

REPORT INFORMATION
  Report Type: Spontaneous
  Country: US (occurrence: US)
  Receive Date: 20160506
  Receipt Date: 20160506
  Transmission Date: 20160815
  Serious: Yes (Hospitalization)
  Sender: FDA-Public Use
  Company Number: US-009507513-1605USA000612

PATIENT
  Age: 61 Year
  Sex: Male

DRUGS (3)
  1. ABACAVIR. [Concomitant]
     Active Substance: ABACAVIR
  2. EMTRIVA [Concomitant]
     Active Substance: EMTRICITABINE
  3. ISENTRESS [Suspect]
     Active Substance: RALTEGRAVIR POTASSIUM
     Indication: HIV INFECTION
     Dosage: 400 MG, BID
     Route: 048

REACTIONS (3)
  - Gastrostomy [Not Recovered/Not Resolved]
  - Circumstance or information capable of leading to medication error [Unknown]
  - Adverse event [Not Recovered/Not Resolved]

NARRATIVE: CASE EVENT DATE: 20160427
